FAERS Safety Report 6839707-5 (Version None)
Quarter: 2010Q3

REPORT INFORMATION
  Report Type: 
  Country: None (occurrence: None)
  Receive Date: 20100708
  Receipt Date: 20100623
  Transmission Date: 20110219
  Serious: Yes (Hospitalization)
  Sender: FDA-Public Use
  Company Number: 2010002583

PATIENT
  Age: 67 Year
  Sex: Male

DRUGS (6)
  1. ERLOTINIB (ERLOTINIB)(TABLET) (ERLOTINIB) [Suspect]
     Indication: NON-SMALL CELL LUNG CANCER
     Dosage: (150 MG,QD), ORAL
     Route: 048
     Dates: start: 20100224, end: 20100606
  2. LORAZEPAM [Concomitant]
  3. ZUCLOPENTHIXOL (ZUCLOPENTHIXOL) [Concomitant]
  4. AMITRIPTYLINE HCL [Concomitant]
  5. LIPIKAR [Concomitant]
  6. CIMETIDINE [Concomitant]

REACTIONS (1)
  - COMA [None]
